FAERS Safety Report 24880634 (Version 1)
Quarter: 2025Q1

REPORT INFORMATION
  Report Type: Report from Study
  Country: US (occurrence: US)
  Receive Date: 20250123
  Receipt Date: 20250123
  Transmission Date: 20250409
  Serious: Yes (Other)
  Sender: ABBVIE
  Company Number: US-ABBVIE-6096907

PATIENT
  Age: 75 Year
  Sex: Female

DRUGS (1)
  1. SKYRIZI [Suspect]
     Active Substance: RISANKIZUMAB-RZAA
     Indication: Psoriasis
     Route: 058
     Dates: start: 20240422

REACTIONS (4)
  - Knee operation [Recovered/Resolved]
  - Skin disorder [Not Recovered/Not Resolved]
  - Pruritus [Unknown]
  - Skin atrophy [Unknown]

NARRATIVE: CASE EVENT DATE: 20240101
